FAERS Safety Report 5867671-4 (Version None)
Quarter: 2008Q3

REPORT INFORMATION
  Report Type: 
  Country: None (occurrence: None)
  Receive Date: 20080902
  Receipt Date: 20080115
  Transmission Date: 20090109
  Serious: No
  Sender: FDA-Public Use
  Company Number: US-ABBOTT-08P-163-0433793-00

PATIENT
  Sex: Male
  Weight: 95.34 kg

DRUGS (3)
  1. DEPAKOTE ER [Suspect]
     Indication: BIPOLAR DISORDER
     Route: 048
     Dates: start: 20070101, end: 20080103
  2. OXCARBAZEPINE [Concomitant]
     Indication: DRUG INEFFECTIVE
     Route: 048
     Dates: start: 20071101, end: 20080103
  3. OXCARBAZEPINE [Concomitant]
     Route: 048
     Dates: start: 20080104

REACTIONS (5)
  - DRUG INEFFECTIVE [None]
  - FATIGUE [None]
  - HEADACHE [None]
  - MANIA [None]
  - SOMNOLENCE [None]
